APPROVED DRUG PRODUCT: SODIUM LACTATE 0.167 MOLAR IN PLASTIC CONTAINER
Active Ingredient: SODIUM LACTATE
Strength: 1.87GM/100ML
Dosage Form/Route: INJECTABLE;INJECTION
Application: N018186 | Product #001
Applicant: B BRAUN MEDICAL INC
Approved: Approved Prior to Jan 1, 1982 | RLD: No | RS: No | Type: DISCN